FAERS Safety Report 9391184 (Version 1)
Quarter: 2013Q3

REPORT INFORMATION
  Report Type: Spontaneous
  Country: BR (occurrence: BR)
  Receive Date: 20130709
  Receipt Date: 20130709
  Transmission Date: 20140515
  Serious: Yes (Hospitalization)
  Sender: FDA-Public Use
  Company Number: BR-SANOFI-AVENTIS-2013SA066848

PATIENT
  Age: 72 Year
  Sex: Male
  Weight: 56 kg

DRUGS (7)
  1. LANTUS [Suspect]
     Indication: TYPE 2 DIABETES MELLITUS
     Route: 058
     Dates: start: 20130503
  2. CLIKSTAR [Concomitant]
     Indication: DEVICE THERAPY
     Dates: start: 20130503
  3. DIGOXIN [Concomitant]
     Indication: CARDIAC DISORDER
     Route: 048
  4. MONOCORDIL [Concomitant]
     Indication: CARDIAC DISORDER
     Route: 048
  5. AAS [Concomitant]
     Indication: CARDIAC DISORDER
     Route: 048
  6. SIMVASTATIN [Concomitant]
     Indication: CARDIAC DISORDER
     Route: 048
  7. CARVEDILOL [Concomitant]
     Indication: CARDIAC DISORDER
     Route: 048

REACTIONS (1)
  - Dyspnoea [Recovered/Resolved]
